FAERS Safety Report 4883143-8 (Version None)
Quarter: 2006Q1

REPORT INFORMATION
  Report Type: 
  Country: None (occurrence: None)
  Receive Date: 20060117
  Receipt Date: 20060117
  Transmission Date: 20060701
  Serious: Yes (Hospitalization)
  Sender: FDA-Public Use
  Company Number: None

PATIENT
  Age: 81 Year
  Sex: Male
  Weight: 75 kg

DRUGS (11)
  1. CELECOXIB    200MG [Suspect]
     Indication: ARTHRITIS
     Dosage: 200MG  DAILY  PO
     Route: 048
  2. ASPIRIN [Suspect]
     Indication: ARTHRITIS
     Dosage: 325MG   DAILY   PO
     Route: 048
  3. DIOVAN [Concomitant]
  4. LATANOPROST [Concomitant]
  5. TIMOPTIC-XE [Concomitant]
  6. FLONASE [Concomitant]
  7. VICODIN [Concomitant]
  8. CIPRO [Concomitant]
  9. UNKNOWN LAXATIVE [Concomitant]
  10. METAMUCIL [Concomitant]
  11. MOM [Concomitant]

REACTIONS (11)
  - ANAEMIA [None]
  - ASTHENIA [None]
  - CONSTIPATION [None]
  - DECREASED APPETITE [None]
  - DIARRHOEA [None]
  - FAECES DISCOLOURED [None]
  - ORAL INTAKE REDUCED [None]
  - PALLOR [None]
  - PROSTATITIS [None]
  - SYNCOPE [None]
  - UPPER GASTROINTESTINAL HAEMORRHAGE [None]
